FAERS Safety Report 15785640 (Version 2)
Quarter: 2019Q1

REPORT INFORMATION
  Report Type: Spontaneous
  Country: ES (occurrence: ES)
  Receive Date: 20190103
  Receipt Date: 20190111
  Transmission Date: 20190417
  Serious: Yes (Hospitalization)
  Sender: FDA-Public Use
  Company Number: ES-TEVA-2018-ES-993428

PATIENT
  Age: 43 Year
  Sex: Female

DRUGS (1)
  1. DULOXETINE. [Suspect]
     Active Substance: DULOXETINE
     Indication: OVERDOSE
     Dosage: 1 DOSAGE FORM = 30 MG
     Route: 065

REACTIONS (5)
  - Vision blurred [Recovered/Resolved]
  - Toxicity to various agents [Recovered/Resolved]
  - Overdose [Unknown]
  - Hallucination, visual [Recovered/Resolved]
  - Opsoclonus myoclonus [Recovered/Resolved]
